FAERS Safety Report 12421865 (Version 1)
Quarter: 2016Q2

REPORT INFORMATION
  Report Type: Report from Study
  Country: NL (occurrence: NL)
  Receive Date: 20160531
  Receipt Date: 20160531
  Transmission Date: 20160815
  Serious: Yes (Other)
  Sender: FDA-Public Use
  Company Number: NL-ABBVIE-16P-114-1638806-00

PATIENT
  Sex: Male

DRUGS (1)
  1. DUODOPA [Suspect]
     Active Substance: CARBIDOPA\LEVODOPA
     Indication: PARKINSON^S DISEASE
     Dosage: MORNING DOSE: 2.4, CONTINUOUS DOSE: 5.6, EXTRA DOSE: 2.6, NIGHT DOSE: 4.4
     Route: 050
     Dates: start: 20120331

REACTIONS (2)
  - Dyskinesia [Not Recovered/Not Resolved]
  - Seizure [Unknown]
